FAERS Safety Report 6756423-9 (Version None)
Quarter: 2010Q2

REPORT INFORMATION
  Report Type: 
  Country: None (occurrence: None)
  Receive Date: 20100604
  Receipt Date: 20100527
  Transmission Date: 20101027
  Serious: Yes (Life-Threatening, Hospitalization, Other)
  Sender: FDA-Public Use
  Company Number: A0838387A

PATIENT
  Age: 66 Year
  Sex: Female

DRUGS (6)
  1. TYKERB [Suspect]
     Indication: DRUG USE FOR UNKNOWN INDICATION
     Dosage: 250MG UNKNOWN
     Route: 048
     Dates: start: 20091101
  2. XELODA [Suspect]
     Indication: BREAST CANCER
     Dates: start: 20091101
  3. LEVAQUIN [Concomitant]
  4. HEPARIN [Concomitant]
  5. COUMADIN [Concomitant]
  6. METFORMIN [Concomitant]

REACTIONS (8)
  - ADVERSE EVENT [None]
  - DECREASED APPETITE [None]
  - DIARRHOEA [None]
  - FATIGUE [None]
  - LOSS OF CONSCIOUSNESS [None]
  - NAUSEA [None]
  - PULMONARY EMBOLISM [None]
  - VOMITING [None]
